FAERS Safety Report 8797779 (Version 2)
Quarter: 2012Q4

REPORT INFORMATION
  Report Type: Report from Study
  Country: CR (occurrence: CR)
  Receive Date: 20120919
  Receipt Date: 20121002
  Transmission Date: 20130627
  Serious: Yes (Hospitalization)
  Sender: FDA-Public Use
  Company Number: CR-ROCHE-1131723

PATIENT
  Age: 78 Year
  Sex: Female

DRUGS (2)
  1. BONVIVA [Suspect]
     Indication: OSTEOPOROSIS
     Route: 048
     Dates: start: 20080619, end: 201205
  2. ATENOLOL [Concomitant]

REACTIONS (1)
  - Breast operation [Recovered/Resolved]
